FAERS Safety Report 9279201 (Version 1)
Quarter: 2013Q2

REPORT INFORMATION
  Report Type: Spontaneous
  Country: DE (occurrence: None)
  Receive Date: 20130501
  Receipt Date: 20130501
  Transmission Date: 20140414
  Serious: Yes (Hospitalization)
  Sender: FDA-Public Use
  Company Number: AUR-APL-2013-03327

PATIENT
  Age: 48 Year
  Sex: Female

DRUGS (8)
  1. OLANZAPINE (OLANZAPINE) [Suspect]
     Indication: PRODUCT USED FOR UNKNOWN INDICATION
     Route: 048
     Dates: start: 20130102, end: 20130107
  2. SERTRALINE (SERTRALINE) (SERTRALINE) [Concomitant]
  3. AKINETON RETARD (BIPERIDEN) [Concomitant]
  4. CELEBREX (CELECOXIB) [Concomitant]
  5. HALOPERIDOL (HALOPERIDOL) (HALOPERIDOL) [Concomitant]
  6. OXAZEPAM (OXAZEPAM) [Concomitant]
  7. ZOPICLONE (ZOPICLONE) [Concomitant]
  8. MIRTAZAPINE (MIRTAZAPINE) [Concomitant]

REACTIONS (2)
  - Eyelid oedema [None]
  - Hepatic enzyme increased [None]
